FAERS Safety Report 5931671-6 (Version None)
Quarter: 2008Q4

REPORT INFORMATION
  Report Type: 
  Country: None (occurrence: None)
  Receive Date: 20081023
  Receipt Date: 20060515
  Transmission Date: 20090506
  Serious: Yes (Hospitalization, Other)
  Sender: FDA-Public Use
  Company Number: 2006AL002063

PATIENT
  Age: 79 Year
  Sex: Female

DRUGS (8)
  1. DICLOFENAC SODIUM [Suspect]
     Indication: ANALGESIA
     Dosage: 50 MG;TID;PO
     Route: 048
     Dates: end: 20060401
  2. CITALOPRAM HYDROBROMIDE [Suspect]
     Indication: DEPRESSION
     Dosage: 50 MG;TID;PO
     Route: 048
     Dates: end: 20060401
  3. ZOPICLONE [Concomitant]
  4. SOTALOL HCL [Concomitant]
  5. OMEPRAZOLE [Concomitant]
  6. AMISULPRIDE [Concomitant]
  7. TETRABENAZINE [Concomitant]
  8. ASPIRIN [Concomitant]

REACTIONS (2)
  - GASTROINTESTINAL HAEMORRHAGE [None]
  - IRON DEFICIENCY ANAEMIA [None]
